FAERS Safety Report 8112154-4 (Version None)
Quarter: 2012Q1

REPORT INFORMATION
  Report Type: 
  Country: None (occurrence: None)
  Receive Date: 20120203
  Receipt Date: 20120125
  Transmission Date: 20120608
  Serious: Yes (Other)
  Sender: FDA-Public Use
  Company Number: US-ABBOTT-12P-163-0897900-00

PATIENT
  Sex: Female
  Weight: 68.1 kg

DRUGS (1)
  1. HUMIRA [Suspect]
     Indication: RHEUMATOID ARTHRITIS
     Dates: start: 20090301, end: 20100701

REACTIONS (7)
  - CARTILAGE INJURY [None]
  - SENSITIVITY OF TEETH [None]
  - SYNOVIAL CYST [None]
  - MUSCLE RUPTURE [None]
  - ARTHRITIS [None]
  - TOOTH INFECTION [None]
  - FALL [None]
